FAERS Safety Report 4661972-3 (Version None)
Quarter: 2005Q2

REPORT INFORMATION
  Report Type: 
  Country: None (occurrence: None)
  Receive Date: 20050511
  Receipt Date: 20050511
  Transmission Date: 20051028
  Serious: Yes (Hospitalization)
  Sender: FDA-Public Use
  Company Number: None

PATIENT
  Age: 54 Year
  Sex: Female

DRUGS (18)
  1. GEMZAR [Suspect]
     Indication: NON-SMALL CELL LUNG CANCER
     Dosage: 1000MG/M2 IV (D1 + 8)
     Route: 042
  2. TAXOL [Suspect]
     Indication: NON-SMALL CELL LUNG CANCER
     Dosage: 200MG/M2 IV  (D1)
     Route: 042
  3. ATIVAN [Concomitant]
  4. LASIX [Concomitant]
  5. K-DUR 10 [Concomitant]
  6. PREDNISONE [Concomitant]
  7. DIFLUCAN [Concomitant]
  8. HYDROCORTISONE CREAM [Concomitant]
  9. TRILISATE [Concomitant]
  10. DECADRON [Concomitant]
  11. LEXAPRO [Concomitant]
  12. MS CONTIN [Concomitant]
  13. HUMABID [Concomitant]
  14. LACTULOSE [Concomitant]
  15. AMITRIPTYLINE [Concomitant]
  16. PEPCID [Concomitant]
  17. SENEKOT S [Concomitant]
  18. ROXANOL [Concomitant]

REACTIONS (4)
  - CRYING [None]
  - NEUROTOXICITY [None]
  - OEDEMA PERIPHERAL [None]
  - PAIN [None]
